FAERS Safety Report 18392396 (Version 1)
Quarter: 2020Q4

REPORT INFORMATION
  Report Type: Spontaneous
  Country: US (occurrence: US)
  Receive Date: 20201016
  Receipt Date: 20201016
  Transmission Date: 20210114
  Serious: Yes (Other)
  Sender: FDA-Public Use
  Company Number: None

PATIENT

DRUGS (1)
  1. REMDESIVIR. [Suspect]
     Active Substance: REMDESIVIR
     Indication: COVID-19
     Route: 041
     Dates: start: 20200929, end: 20201001

REACTIONS (3)
  - Dyspnoea [None]
  - Therapy cessation [None]
  - Chest pain [None]

NARRATIVE: CASE EVENT DATE: 20200930
